FAERS Safety Report 17635532 (Version 1)
Quarter: 2020Q2

REPORT INFORMATION
  Report Type: Report from Study
  Country: DE (occurrence: DE)
  Receive Date: 20200407
  Receipt Date: 20200407
  Transmission Date: 20200713
  Serious: Yes (Death, Hospitalization, Other)
  Sender: FDA-Public Use
  Company Number: DE-BRISTOL-MYERS SQUIBB COMPANY-BMS-2020-026583

PATIENT
  Age: 70 Year
  Sex: Male

DRUGS (6)
  1. MARAVIROC [Suspect]
     Active Substance: MARAVIROC
     Indication: COLORECTAL CANCER METASTATIC
     Dosage: 300 MILLIGRAM, BID
     Route: 065
     Dates: start: 20200220, end: 20200305
  2. NIVOLUMAB [Suspect]
     Active Substance: NIVOLUMAB
     Indication: PANCREATIC CARCINOMA
     Route: 065
  3. MARAVIROC [Suspect]
     Active Substance: MARAVIROC
     Indication: PANCREATIC CARCINOMA
     Route: 065
  4. IPILIMUMAB [Suspect]
     Active Substance: IPILIMUMAB
     Indication: COLORECTAL CANCER METASTATIC
     Dosage: 1 MILLILITRE PER KILOGRAM, Q6WK
     Route: 065
     Dates: start: 20200220, end: 20200220
  5. IPILIMUMAB [Suspect]
     Active Substance: IPILIMUMAB
     Indication: PANCREATIC CARCINOMA
     Route: 065
  6. NIVOLUMAB [Suspect]
     Active Substance: NIVOLUMAB
     Indication: COLORECTAL CANCER METASTATIC
     Dosage: 240 MILLIGRAM, Q2WK
     Route: 065
     Dates: start: 20200220, end: 20200220

REACTIONS (1)
  - Pericarditis constrictive [Fatal]

NARRATIVE: CASE EVENT DATE: 20200316
